FAERS Safety Report 5777328-6 (Version None)
Quarter: 2008Q2

REPORT INFORMATION
  Report Type: 
  Country: None (occurrence: None)
  Receive Date: 20080618
  Receipt Date: 20080610
  Transmission Date: 20081010
  Serious: Yes (Disabling)
  Sender: FDA-Public Use
  Company Number: PHEH2008US04614

PATIENT
  Sex: Male
  Weight: 70.748 kg

DRUGS (5)
  1. GLEEVEC [Suspect]
     Indication: CHRONIC EOSINOPHILIC LEUKAEMIA
     Dosage: 200 MG, BID
     Route: 048
     Dates: start: 20080213, end: 20080312
  2. GLEEVEC [Suspect]
     Dosage: 200 MG, BID
     Dates: start: 20080409, end: 20080423
  3. GABAPENTIN [Suspect]
     Indication: NEUROPATHY PERIPHERAL
     Dosage: 300 MG, TID
     Route: 048
     Dates: start: 20080206, end: 20080423
  4. LOVENOX [Concomitant]
     Indication: DEEP VEIN THROMBOSIS
     Dosage: 70 MG, Q12H
     Route: 058
     Dates: start: 20071228
  5. PREDNISONE TAB [Concomitant]
     Indication: HYPEREOSINOPHILIC SYNDROME
     Dosage: TAPERING DOSE, STARTED WITH 80MG QD
     Route: 048

REACTIONS (6)
  - DERMATITIS EXFOLIATIVE [None]
  - HYPERGLYCAEMIA [None]
  - NEUROPATHY PERIPHERAL [None]
  - PAIN IN EXTREMITY [None]
  - PRURITUS [None]
  - SWELLING [None]
